FAERS Safety Report 8507540-4 (Version None)
Quarter: 2012Q3

REPORT INFORMATION
  Report Type: 
  Country: None (occurrence: None)
  Receive Date: 20120713
  Receipt Date: 20120628
  Transmission Date: 20120928
  Serious: Yes (Death, Other)
  Sender: FDA-Public Use
  Company Number: US-RANBAXY-2012US-57652

PATIENT
  Age: 9 Year
  Sex: Male

DRUGS (2)
  1. SERTRALINE HYDROCHLORIDE [Suspect]
     Indication: MENTAL DISORDER
  2. SERTRALINE HYDROCHLORIDE [Suspect]
     Indication: GENERALISED ANXIETY DISORDER
     Dosage: 25 MG/ DAY
     Route: 065

REACTIONS (1)
  - ERYTHEMA MULTIFORME [None]
